FAERS Safety Report 15823628 (Version 1)
Quarter: 2019Q1

REPORT INFORMATION
  Report Type: Report from Study
  Country: US (occurrence: US)
  Receive Date: 20190114
  Receipt Date: 20190114
  Transmission Date: 20190417
  Serious: Yes (Hospitalization)
  Sender: FDA-Public Use
  Company Number: US-ACTELION-A-NJ2012-64945

PATIENT
  Age: 89 Year
  Sex: Female
  Weight: 54.42 kg

DRUGS (4)
  1. AMLODIPINE [Concomitant]
     Active Substance: AMLODIPINE BESYLATE
  2. TRACLEER [Suspect]
     Active Substance: BOSENTAN
     Indication: PULMONARY ARTERIAL HYPERTENSION
     Dosage: 125 MG, BID
     Route: 048
  3. TRACLEER [Suspect]
     Active Substance: BOSENTAN
     Dosage: UNK
     Route: 048
     Dates: start: 200402
  4. CALCIUM [Concomitant]
     Active Substance: CALCIUM

REACTIONS (17)
  - Secretion discharge [Not Recovered/Not Resolved]
  - Echocardiogram abnormal [Unknown]
  - Sinusitis [Unknown]
  - Inner ear disorder [Unknown]
  - Paranasal sinus hypersecretion [Unknown]
  - Constipation [Unknown]
  - Productive cough [Unknown]
  - Ear discomfort [Unknown]
  - Pulmonary valve incompetence [Unknown]
  - Back pain [Unknown]
  - Hypertension [Unknown]
  - Labyrinthitis [Unknown]
  - Nasal dryness [Not Recovered/Not Resolved]
  - Nasal congestion [Unknown]
  - Abdominal pain [Unknown]
  - Abdominal discomfort [Unknown]
  - Lacrimation increased [Unknown]

NARRATIVE: CASE EVENT DATE: 2004
